FAERS Safety Report 7110431-7 (Version None)
Quarter: 2010Q4

REPORT INFORMATION
  Report Type: 
  Country: None (occurrence: None)
  Receive Date: 20101112
  Receipt Date: 20101027
  Transmission Date: 20110411
  Serious: Yes (Death, Hospitalization)
  Sender: FDA-Public Use
  Company Number: 1-17290321

PATIENT
  Age: 55 Year
  Sex: Female

DRUGS (21)
  1. QUININE SULFATE [Suspect]
     Indication: MUSCLE SPASMS
     Dosage: AS NEEDED, ORAL
     Route: 048
     Dates: start: 20080603
  2. QUININE SULFATE [Suspect]
     Indication: MUSCLE SPASMS
     Dosage: AS NEEDED, ORAL
     Route: 048
     Dates: start: 20061228
  3. DIOVAN [Concomitant]
  4. LANTUS [Concomitant]
  5. LASIX [Concomitant]
  6. AMBIEN [Concomitant]
  7. AZELASTINE HCL [Concomitant]
  8. LACTULOSE [Concomitant]
  9. CLARITIN [Concomitant]
  10. NEXIUM [Concomitant]
  11. SPIRONOLACTONE [Concomitant]
  12. VITAMIN A [Concomitant]
  13. CHOLECALCIFEROL [Concomitant]
  14. ZINC [Concomitant]
  15. ZOLOFT [Concomitant]
  16. PATANOL [Concomitant]
  17. HUMALOG [Concomitant]
  18. UNSPECIFIED NEBULIZED MEDICATIONS [Concomitant]
  19. NORVASC [Concomitant]
  20. POTASSIUM CHLORIDE [Concomitant]
  21. VITAMIN D WITH IRON [Concomitant]

REACTIONS (7)
  - ARTHRITIS [None]
  - BLOOD DISORDER [None]
  - DRUG HYPERSENSITIVITY [None]
  - PAIN [None]
  - RENAL FAILURE ACUTE [None]
  - THROMBOCYTOPENIA [None]
  - UNEVALUABLE EVENT [None]
